FAERS Safety Report 5909156-2 (Version None)
Quarter: 2008Q4

REPORT INFORMATION
  Report Type: 
  Country: None (occurrence: None)
  Receive Date: 20081006
  Receipt Date: 20080929
  Transmission Date: 20090506
  Serious: Yes (Other)
  Sender: FDA-Public Use
  Company Number: US-AMGEN-QUU307279

PATIENT
  Sex: Female
  Weight: 48.1 kg

DRUGS (3)
  1. ENBREL [Suspect]
     Indication: PSORIASIS
     Route: 058
     Dates: start: 20000225
  2. ENBREL [Suspect]
     Indication: PSORIATIC ARTHROPATHY
  3. METHOTREXATE SODIUM [Concomitant]

REACTIONS (6)
  - ARTHRITIS REACTIVE [None]
  - DEMENTIA ALZHEIMER'S TYPE [None]
  - DEPRESSION [None]
  - FACTOR V LEIDEN MUTATION [None]
  - HYPERTENSION [None]
  - THROMBOCYTOPENIA [None]
